FAERS Safety Report 9007728 (Version 1)
Quarter: 2013Q1

REPORT INFORMATION
  Report Type: Spontaneous
  Country: US (occurrence: US)
  Receive Date: 20130111
  Receipt Date: 20130111
  Transmission Date: 20140127
  Serious: No
  Sender: FDA-Public Use
  Company Number: US-BIOGENIDEC-2012BI061183

PATIENT
  Sex: Female

DRUGS (4)
  1. AVONEX [Suspect]
     Indication: MULTIPLE SCLEROSIS
     Route: 030
     Dates: start: 20120306, end: 2012
  2. AVONEX [Suspect]
     Indication: MULTIPLE SCLEROSIS
     Route: 030
     Dates: start: 2012
  3. ANTIDEPRESSANT (NOS) [Concomitant]
     Indication: STRESS
  4. AMBIEN [Concomitant]
     Indication: INITIAL INSOMNIA

REACTIONS (6)
  - Dysgraphia [Not Recovered/Not Resolved]
  - Fall [Recovered/Resolved]
  - Gait disturbance [Unknown]
  - Vomiting [Recovered/Resolved]
  - Eye movement disorder [Not Recovered/Not Resolved]
  - Drug dose omission [Recovered/Resolved]
